FAERS Safety Report 4699737-9 (Version None)
Quarter: 2005Q2

REPORT INFORMATION
  Report Type: 
  Country: None (occurrence: None)
  Receive Date: 20050623
  Receipt Date: 20050615
  Transmission Date: 20051028
  Serious: Yes (Other)
  Sender: FDA-Public Use
  Company Number: 2005-06-0418

PATIENT
  Age: 27 Year
  Sex: Female

DRUGS (1)
  1. INTERFERON INJECTABLE [Suspect]
     Indication: HEPATITIS B
     Dates: start: 20040906

REACTIONS (2)
  - CYTOMEGALOVIRUS ENTEROCOLITIS [None]
  - PROTHROMBIN TIME PROLONGED [None]
